FAERS Safety Report 23292626 (Version 4)
Quarter: 2025Q2

REPORT INFORMATION
  Report Type: Spontaneous
  Country: US (occurrence: US)
  Receive Date: 20231213
  Receipt Date: 20250417
  Transmission Date: 20250716
  Serious: No
  Sender: SANOFI AVENTIS
  Company Number: US-SA-SAC20231208001006

PATIENT
  Age: 75 Year
  Sex: Female

DRUGS (1)
  1. KEVZARA [Suspect]
     Active Substance: SARILUMAB
     Indication: Rheumatoid arthritis
     Dosage: 200 MG, QOW
     Route: 058
     Dates: start: 202311

REACTIONS (6)
  - Pain [Unknown]
  - Malaise [Unknown]
  - Loss of personal independence in daily activities [Recovered/Resolved]
  - Hepatic steatosis [Unknown]
  - Gait disturbance [Unknown]
  - Tinea pedis [Unknown]

NARRATIVE: CASE EVENT DATE: 20240101
